FAERS Safety Report 4933011-8 (Version None)
Quarter: 2006Q1

REPORT INFORMATION
  Report Type: 
  Country: None (occurrence: None)
  Receive Date: 20060306
  Receipt Date: 20051213
  Transmission Date: 20060701
  Serious: Yes (Hospitalization)
  Sender: FDA-Public Use
  Company Number: US-ABBOTT-05P-163-0319679-00

PATIENT
  Sex: Male

DRUGS (2)
  1. LEXAPRO [Suspect]
     Indication: ANGER
     Route: 048
     Dates: start: 20051031, end: 20051103
  2. LEXAPRO [Suspect]
     Route: 048

REACTIONS (1)
  - ENTEROCOLITIS INFECTIOUS [None]
